FAERS Safety Report 14901950 (Version 1)
Quarter: 2018Q2

REPORT INFORMATION
  Report Type: Spontaneous
  Country: US (occurrence: US)
  Receive Date: 20180516
  Receipt Date: 20180516
  Transmission Date: 20180711
  Serious: Yes (Other)
  Sender: FDA-Public Use
  Company Number: US-BAYER-2018-088471

PATIENT
  Age: 84 Year
  Sex: Female
  Weight: 54 kg

DRUGS (3)
  1. ALKA-SELTZER PLUS DAY NON-DROWSY COLD AND FLU FORMULA [Suspect]
     Active Substance: ACETAMINOPHEN\DEXTROMETHORPHAN HYDROBROMIDE\PHENYLEPHRINE HYDROCHLORIDE
     Dosage: 2 DF, HS
     Route: 048
     Dates: start: 20180507, end: 20180507
  2. ALKA-SELTZER PLUS DAY NON-DROWSY COLD AND FLU FORMULA [Suspect]
     Active Substance: ACETAMINOPHEN\DEXTROMETHORPHAN HYDROBROMIDE\PHENYLEPHRINE HYDROCHLORIDE
     Dosage: 1 DF, OM
     Route: 048
     Dates: start: 20180508, end: 20180508
  3. SYNTHROID [Concomitant]
     Active Substance: LEVOTHYROXINE SODIUM
     Dosage: UNK

REACTIONS (5)
  - Product use complaint [None]
  - Product expiration date issue [None]
  - Pharmacophobia [None]
  - Choking [Recovered/Resolved]
  - Product lot number issue [None]

NARRATIVE: CASE EVENT DATE: 20180507
